FAERS Safety Report 18419821 (Version 1)
Quarter: 2020Q4

REPORT INFORMATION
  Report Type: Spontaneous
  Country: US (occurrence: US)
  Receive Date: 20201023
  Receipt Date: 20201023
  Transmission Date: 20210114
  Serious: No
  Sender: FDA-Public Use
  Company Number: None

PATIENT

DRUGS (22)
  1. FOLIC ACID. [Concomitant]
     Active Substance: FOLIC ACID
  2. FUROSEMIDE. [Concomitant]
     Active Substance: FUROSEMIDE
  3. SYNTHROID [Concomitant]
     Active Substance: LEVOTHYROXINE SODIUM
  4. HUMIRA [Suspect]
     Active Substance: ADALIMUMAB
     Indication: RHEUMATOID ARTHRITIS
     Route: 058
     Dates: start: 20181214
  5. OXYCODONE [Concomitant]
     Active Substance: OXYCODONE
  6. PLAQUENIL [Concomitant]
     Active Substance: HYDROXYCHLOROQUINE SULFATE
  7. VITAMIN B COMPLEX [Concomitant]
     Active Substance: CYANOCOBALAMIN\DEXPANTHENOL\NIACINAMIDE\PYRIDOXINE HYDROCHLORIDE\RIBOFLAVIN 5^-PHOSPHATE SODIUM\THIAMINE HYDROCHLORIDE\VITAMIN B COMPLEX
  8. CALCIUM-+D [Concomitant]
  9. CYMBALTA [Concomitant]
     Active Substance: DULOXETINE HYDROCHLORIDE
  10. DULOXETINE. [Concomitant]
     Active Substance: DULOXETINE
  11. TIZANIDINE. [Concomitant]
     Active Substance: TIZANIDINE
  12. HYDRALAZINE [Concomitant]
     Active Substance: HYDRALAZINE HYDROCHLORIDE
  13. HYDROMORPHON [Concomitant]
     Active Substance: HYDROMORPHONE
  14. METHOCARBAM [Concomitant]
     Active Substance: METHOCARBAMOL
  15. NARCAN [Concomitant]
     Active Substance: NALOXONE HYDROCHLORIDE
  16. METFORMIN [Concomitant]
     Active Substance: METFORMIN HYDROCHLORIDE
  17. METOPROL TAR [Concomitant]
  18. METHOTREXATE. [Concomitant]
     Active Substance: METHOTREXATE
  19. NEURONTIN [Concomitant]
     Active Substance: GABAPENTIN
  20. SULFASALAZINE DELAYED-RELEASE [Concomitant]
     Active Substance: SULFASALAZINE
  21. POTASSIUM [Concomitant]
     Active Substance: POTASSIUM
  22. PRAVASTATIN. [Concomitant]
     Active Substance: PRAVASTATIN

REACTIONS (2)
  - Influenza like illness [None]
  - Condition aggravated [None]
